FAERS Safety Report 9968493 (Version 1)
Quarter: 2014Q1

REPORT INFORMATION
  Report Type: Report from Study
  Country: US (occurrence: US)
  Receive Date: 20140306
  Receipt Date: 20140306
  Transmission Date: 20141002
  Serious: No
  Sender: FDA-Public Use
  Company Number: US-ABBVIE-13P-163-1145802-00

PATIENT
  Sex: Male

DRUGS (7)
  1. HUMIRA [Suspect]
     Indication: CROHN^S DISEASE
  2. PLAVIX [Concomitant]
     Indication: CARDIOVASCULAR EVENT PROPHYLAXIS
     Dosage: 75MG DAILY
  3. SIMVASTATIN [Concomitant]
     Indication: BLOOD CHOLESTEROL
     Dosage: 40MG DAILY
  4. METOPROLOL [Concomitant]
     Indication: HYPERTENSION
     Dosage: 50MG DAILY
  5. TAMSULOSIN [Concomitant]
     Indication: PROSTATIC DISORDER
     Dosage: 0.4MG DAILY
  6. ASPIRIN [Concomitant]
     Indication: CARDIOVASCULAR EVENT PROPHYLAXIS
     Dosage: 80MG DAILY
  7. TRAMADOL/APAP [Concomitant]
     Indication: ANKYLOSING SPONDYLITIS
     Dosage: 37.5MG/325MG 2 TABLETS DAILY

REACTIONS (1)
  - Upper respiratory tract infection [Recovering/Resolving]
